FAERS Safety Report 24154644 (Version 2)
Quarter: 2024Q3

REPORT INFORMATION
  Report Type: Spontaneous
  Country: US (occurrence: US)
  Receive Date: 20240731
  Receipt Date: 20240731
  Transmission Date: 20241017
  Serious: Yes (Other)
  Sender: ROCHE
  Company Number: US-ROCHE-10000034461

PATIENT
  Age: 51 Year
  Sex: Female
  Weight: 128.36 kg

DRUGS (9)
  1. XOLAIR [Suspect]
     Active Substance: OMALIZUMAB
     Indication: Asthma
     Dosage: WO 150 MG PFS PER DOSE
     Route: 058
     Dates: end: 202406
  2. XOLAIR [Suspect]
     Active Substance: OMALIZUMAB
     Route: 058
     Dates: start: 202406
  3. STRATTERA [Concomitant]
     Active Substance: ATOMOXETINE HYDROCHLORIDE
     Indication: Depression
     Route: 048
     Dates: start: 2017
  4. STRATTERA [Concomitant]
     Active Substance: ATOMOXETINE HYDROCHLORIDE
     Indication: Anxiety
  5. STRATTERA [Concomitant]
     Active Substance: ATOMOXETINE HYDROCHLORIDE
     Indication: Attention deficit hyperactivity disorder
  6. WELLBUTRIN [Concomitant]
     Active Substance: BUPROPION HYDROCHLORIDE
     Indication: Depression
     Dosage: 100 OR 150 TABLET PER DOSE
     Route: 048
  7. WELLBUTRIN [Concomitant]
     Active Substance: BUPROPION HYDROCHLORIDE
     Indication: Ex-tobacco user
  8. WELLBUTRIN [Concomitant]
     Active Substance: BUPROPION HYDROCHLORIDE
     Indication: Weight decreased
  9. LISINOPRIL [Concomitant]
     Active Substance: LISINOPRIL
     Indication: Hypertension
     Dosage: IN THE MORNING
     Route: 048

REACTIONS (7)
  - Gallbladder rupture [Recovered/Resolved]
  - Depression [Unknown]
  - Exostosis [Unknown]
  - Epicondylitis [Unknown]
  - Neoplasm [Unknown]
  - Trigger finger [Unknown]
  - Vomiting [Unknown]

NARRATIVE: CASE EVENT DATE: 20240722
